FAERS Safety Report 18908002 (Version 1)
Quarter: 2021Q1

REPORT INFORMATION
  Report Type: Spontaneous
  Country: US (occurrence: US)
  Receive Date: 20210218
  Receipt Date: 20210218
  Transmission Date: 20210420
  Serious: Yes (Hospitalization, Other)
  Sender: FDA-Public Use
  Company Number: US-AUROBINDO-AUR-APL-2021-006540

PATIENT
  Age: 26 Year
  Sex: Male

DRUGS (4)
  1. PROPOFOL. [Suspect]
     Active Substance: PROPOFOL
     Indication: DETOXIFICATION
     Dosage: 100 MILLIGRAM
     Route: 065
  2. CLONIDINE. [Suspect]
     Active Substance: CLONIDINE
     Indication: DETOXIFICATION
     Dosage: 0.2 MILLIGRAM
     Route: 065
  3. NALOXONE HYDROCHLORIDE. [Suspect]
     Active Substance: NALOXONE HYDROCHLORIDE
     Indication: DETOXIFICATION
     Dosage: 30 MILLIGRAM
     Route: 065
  4. NITROUS OXIDE. [Suspect]
     Active Substance: NITROUS OXIDE
     Indication: DETOXIFICATION
     Dosage: UNK
     Route: 065

REACTIONS (2)
  - Pulseless electrical activity [Unknown]
  - Necrotising fasciitis [Unknown]
